FAERS Safety Report 13899247 (Version 3)
Quarter: 2020Q2

REPORT INFORMATION
  Report Type: Spontaneous
  Country: US (occurrence: US)
  Receive Date: 20170823
  Receipt Date: 20200520
  Transmission Date: 20200713
  Serious: No
  Sender: FDA-Public Use
  Company Number: US-JAZZ-2017-US-007988

PATIENT
  Age: 45 Year
  Sex: Female

DRUGS (22)
  1. XYREM [Suspect]
     Active Substance: SODIUM OXYBATE
     Dosage: 3.25 G, QD SECOND DOSE
     Route: 048
     Dates: start: 201602
  2. MODAFINIL. [Concomitant]
     Active Substance: MODAFINIL
  3. METHYLPREDNISOLONE. [Concomitant]
     Active Substance: METHYLPREDNISOLONE
  4. L-THREONINE [Concomitant]
  5. COENZYME Q10 [Concomitant]
     Active Substance: UBIDECARENONE
  6. VITAMIN B COMPLEX [Concomitant]
     Active Substance: CYANOCOBALAMIN\DEXPANTHENOL\NIACINAMIDE\PYRIDOXINE HYDROCHLORIDE\RIBOFLAVIN 5^-PHOSPHATE SODIUM\THIAMINE HYDROCHLORIDE\VITAMIN B COMPLEX
  7. IBUPROFEN. [Concomitant]
     Active Substance: IBUPROFEN
  8. VITAMIN D [ERGOCALCIFEROL] [Concomitant]
     Active Substance: ERGOCALCIFEROL
  9. EXCEDRIN MIGRAINE [Concomitant]
     Active Substance: ACETAMINOPHEN\ASPIRIN\CAFFEINE
  10. CYCLOBENZAPRINE. [Concomitant]
     Active Substance: CYCLOBENZAPRINE
  11. NUVIGIL [Concomitant]
     Active Substance: ARMODAFINIL
  12. XYREM [Suspect]
     Active Substance: SODIUM OXYBATE
     Indication: NARCOLEPSY
     Dosage: 2.25G, BID
     Route: 048
     Dates: start: 201303, end: 201303
  13. XYREM [Suspect]
     Active Substance: SODIUM OXYBATE
     Dosage: 4 G, QD FIRST DOSE
     Route: 048
     Dates: start: 201602
  14. VITAMIN C [Concomitant]
     Active Substance: ASCORBIC ACID
  15. IRON [Concomitant]
     Active Substance: IRON
  16. VITAMIN B12 [Concomitant]
     Active Substance: CYANOCOBALAMIN
  17. SYNTHROID [Concomitant]
     Active Substance: LEVOTHYROXINE SODIUM
  18. ACETYL L-CARNITINE [ACETYLCARNITINE] [Concomitant]
  19. NORTRIPTYLINE HCL [Concomitant]
     Active Substance: NORTRIPTYLINE HYDROCHLORIDE
  20. ALPHA LIPOIC ACID [Concomitant]
     Active Substance: .ALPHA.-LIPOIC ACID
  21. XYREM [Suspect]
     Active Substance: SODIUM OXYBATE
     Indication: CATAPLEXY
     Dosage: DOSE ADJUSTMENT
     Route: 048
     Dates: start: 201303, end: 201602
  22. FISH OIL CONCENTRATE [Concomitant]
     Active Substance: FISH OIL

REACTIONS (1)
  - Hypertonic bladder [Unknown]

NARRATIVE: CASE EVENT DATE: 20170608
